FAERS Safety Report 4582540-8 (Version None)
Quarter: 2005Q1

REPORT INFORMATION
  Report Type: 
  Country: None (occurrence: None)
  Receive Date: 20050211
  Receipt Date: 20050211
  Transmission Date: 20050727
  Serious: Yes (Life-Threatening)
  Sender: FDA-Public Use
  Company Number: None

PATIENT
  Age: 80 Year
  Sex: Female
  Weight: 61.6892 kg

DRUGS (10)
  1. CRESTOR [Suspect]
     Indication: ATRIAL FIBRILLATION
     Dosage: 10 MG DAILY
     Dates: start: 20041001
  2. CRESTOR [Suspect]
     Indication: CORONARY ARTERY DISEASE
     Dosage: 10 MG DAILY
     Dates: start: 20041001
  3. CRESTOR [Suspect]
     Indication: DYSLIPIDAEMIA
     Dosage: 10 MG DAILY
     Dates: start: 20041001
  4. DILANTIN [Concomitant]
  5. CALCIUM + VIT D [Concomitant]
  6. ACTONEL [Concomitant]
  7. PREVACID [Concomitant]
  8. ARTHROTEC [Concomitant]
  9. ASPIRIN [Concomitant]
  10. AMIODARONE [Concomitant]

REACTIONS (5)
  - FLATULENCE [None]
  - LIVER FUNCTION TEST ABNORMAL [None]
  - MUSCLE SPASMS [None]
  - NAUSEA [None]
  - PYREXIA [None]
